FAERS Safety Report 10655397 (Version 1)
Quarter: 2014Q4

REPORT INFORMATION
  Report Type: Report from Study
  Country: US (occurrence: US)
  Receive Date: 20141216
  Receipt Date: 20141216
  Transmission Date: 20150529
  Serious: Yes (Other)
  Sender: FDA-Public Use
  Company Number: US-GLAXOSMITHKLINE-US2014GSK029883

PATIENT
  Age: 18 Year
  Sex: Male
  Weight: 74 kg

DRUGS (10)
  1. MERCAPTOPURINE. [Suspect]
     Active Substance: MERCAPTOPURINE
     Indication: T-CELL TYPE ACUTE LEUKAEMIA
     Dosage: 60 MG/M2, CYC
     Route: 048
     Dates: start: 20140715
  2. METHOTREXATE [Suspect]
     Active Substance: METHOTREXATE
     Indication: T-CELL TYPE ACUTE LEUKAEMIA
     Dosage: UNK, CYC
     Route: 037
     Dates: start: 20140530
  3. CYTARABINE SOLUTION FOR INJECTION/INFUSION [Suspect]
     Active Substance: CYTARABINE
     Indication: T-CELL TYPE ACUTE LEUKAEMIA
     Dosage: 75 MG/M2, CYC
     Dates: start: 20140530
  4. NELARABINE SOLUTION FOR INFUSION [Suspect]
     Active Substance: NELARABINE
     Indication: T-CELL TYPE ACUTE LEUKAEMIA
     Dosage: 650 MG/M2, CYC
     Route: 042
     Dates: start: 20140709
  5. CYCLOPHOSPHAMIDE SOLUTION FOR INJECTION/INFUSION [Suspect]
     Active Substance: CYCLOPHOSPHAMIDE
     Indication: T-CELL TYPE ACUTE LEUKAEMIA
     Dosage: 1000 MG/M2, CYC
     Route: 042
     Dates: start: 20140715
  6. PEG-ASPARAGINASE SOLUTION FOR INJECTION/INFUSION [Suspect]
     Active Substance: PEGASPARGASE
     Indication: T-CELL TYPE ACUTE LEUKAEMIA
     Dosage: UNK, CYC
     Route: 030
     Dates: start: 20140530
  7. PREDNISONE. [Suspect]
     Active Substance: PREDNISONE
     Indication: T-CELL TYPE ACUTE LEUKAEMIA
     Dosage: UNK
     Route: 065
     Dates: start: 20140530
  8. VINCRISTINE SOLUTION FOR INJECTION/INFUSION [Suspect]
     Active Substance: VINCRISTINE
     Indication: T-CELL TYPE ACUTE LEUKAEMIA
     Dosage: 1.5 MG/M2, CYC
     Route: 042
     Dates: start: 20140530
  9. RADIATION [Concomitant]
     Active Substance: RADIATION THERAPY
     Indication: T-CELL TYPE ACUTE LEUKAEMIA
     Dosage: UNK, CYC
     Route: 061
  10. DAUNORUBICIN [Suspect]
     Active Substance: DAUNORUBICIN
     Indication: T-CELL TYPE ACUTE LEUKAEMIA
     Dosage: UNK
     Route: 065
     Dates: start: 20140530

REACTIONS (1)
  - Alanine aminotransferase increased [Recovered/Resolved]

NARRATIVE: CASE EVENT DATE: 20140812
